FAERS Safety Report 7731318-2 (Version None)
Quarter: 2011Q3

REPORT INFORMATION
  Report Type: 
  Country: None (occurrence: None)
  Receive Date: 20110906
  Receipt Date: 20110823
  Transmission Date: 20111222
  Serious: Yes (Hospitalization, Other)
  Sender: FDA-Public Use
  Company Number: US-BAYER-2011-076866

PATIENT
  Age: 69 Year
  Sex: Female
  Weight: 68.027 kg

DRUGS (11)
  1. ASPIRIN [Suspect]
     Dosage: UNK
     Dates: start: 20090101, end: 20110501
  2. METOPROLOL TARTRATE [Concomitant]
     Indication: HYPERTENSION
     Dosage: UNK
  3. ACETAMINOPHEN [Concomitant]
     Indication: PAIN
     Dosage: UNK UNK, PRN
  4. LEVOTHYROXINE SODIUM [Concomitant]
     Dosage: UNK
  5. CYANOCOBALAMIN [Concomitant]
  6. HUMIRA [Suspect]
     Dosage: 40 MG, OW
     Route: 058
     Dates: start: 20110201, end: 20110501
  7. HUMIRA [Suspect]
     Indication: RHEUMATOID ARTHRITIS
     Dosage: 40 MG, EVERY OTHER WEEK
     Route: 058
     Dates: start: 20100101, end: 20110201
  8. HUMIRA [Suspect]
     Dosage: 40 MG, OW
     Route: 058
     Dates: start: 20110601
  9. NAPROXEN SODIUM [Suspect]
     Dosage: UNK
     Dates: end: 20110501
  10. PLAVIX [Suspect]
     Indication: CAROTID ARTERY OCCLUSION
     Dosage: UNK
     Dates: start: 20090101, end: 20110501
  11. OSCAL D [Concomitant]
     Dosage: UNK

REACTIONS (9)
  - INFLUENZA [None]
  - GASTRIC ULCER [None]
  - RHEUMATOID ARTHRITIS [None]
  - MALAISE [None]
  - UPPER RESPIRATORY TRACT INFECTION [None]
  - EAR PAIN [None]
  - OROPHARYNGEAL PAIN [None]
  - HAEMOGLOBIN DECREASED [None]
  - CONJUNCTIVITIS INFECTIVE [None]
